FAERS Safety Report 25158718 (Version 1)
Quarter: 2025Q2

REPORT INFORMATION
  Report Type: Spontaneous
  Country: FR (occurrence: FR)
  Receive Date: 20250404
  Receipt Date: 20250404
  Transmission Date: 20250717
  Serious: Yes (Hospitalization)
  Sender: ROCHE
  Company Number: FR-ROCHE-3319052

PATIENT
  Age: 57 Year
  Sex: Female

DRUGS (4)
  1. COBIMETINIB [Suspect]
     Active Substance: COBIMETINIB
     Indication: Metastatic malignant melanoma
     Dosage: 60 MG, QD (THREE WEEKS OUT OF FOUR)
     Route: 065
     Dates: start: 201805
  2. TRAMETINIB [Suspect]
     Active Substance: TRAMETINIB
     Indication: Localised melanoma
     Route: 065
     Dates: start: 201802, end: 2018
  3. DABRAFENIB [Suspect]
     Active Substance: DABRAFENIB
     Indication: Localised melanoma
     Dosage: 150 MG, BID
     Route: 065
     Dates: start: 201805
  4. DABRAFENIB [Suspect]
     Active Substance: DABRAFENIB
     Indication: Metastatic malignant melanoma
     Route: 065
     Dates: start: 201502

REACTIONS (6)
  - Off label use [Unknown]
  - Pyrexia [Unknown]
  - Asthenia [Unknown]
  - Myalgia [Unknown]
  - Pyrexia [Recovered/Resolved]
  - Product use issue [Recovered/Resolved]
